FAERS Safety Report 4796573-X (Version None)
Quarter: 2005Q4

REPORT INFORMATION
  Report Type: 
  Country: None (occurrence: None)
  Receive Date: 20051007
  Receipt Date: 20041219
  Transmission Date: 20060501
  Serious: Yes (Other)
  Sender: FDA-Public Use
  Company Number: 9595

PATIENT
  Age: 13 Year
  Sex: Male
  Weight: 50 kg

DRUGS (8)
  1. METHOTREXATE [Suspect]
     Indication: ACUTE LYMPHOCYTIC LEUKAEMIA
     Dosage: 5 G/M2 ONCE IV
     Route: 042
     Dates: start: 20041130, end: 20041130
  2. METHOTREXATE [Suspect]
  3. METHOTREXATE [Suspect]
  4. METHOTREXATE [Suspect]
     Indication: ACUTE LYMPHOCYTIC LEUKAEMIA
     Dosage: 5 G/M2 ONCE IV
     Route: 042
     Dates: start: 20041214, end: 20041214
  5. METHOTREXATE [Suspect]
  6. METHOTREXATE [Suspect]
  7. METHOTREXATE SODIUM [Suspect]
     Indication: ACUTE LYMPHOCYTIC LEUKAEMIA
     Dosage: 12 MG DAILY IT
     Route: 037
     Dates: start: 20041130, end: 20041130
  8. METHOTREXATE SODIUM [Suspect]
     Indication: ACUTE LYMPHOCYTIC LEUKAEMIA
     Dosage: 12 MG DAILY IT
     Route: 037
     Dates: start: 20041214, end: 20041214

REACTIONS (4)
  - DYSARTHRIA [None]
  - HYPOAESTHESIA [None]
  - NEUROTOXICITY [None]
  - PARAESTHESIA [None]
